FAERS Safety Report 9397590 (Version 1)
Quarter: 2013Q3

REPORT INFORMATION
  Report Type: Spontaneous
  Country: NO (occurrence: NO)
  Receive Date: 20130712
  Receipt Date: 20130712
  Transmission Date: 20140515
  Serious: Yes (Hospitalization, Other)
  Sender: FDA-Public Use
  Company Number: NO-PFIZER INC-2013200970

PATIENT
  Age: 55 Year
  Sex: Female

DRUGS (4)
  1. SOLU-CORTEF [Suspect]
     Dosage: 100 MG, UNK
     Route: 065
  2. REMICADE [Suspect]
     Indication: CROHN^S DISEASE
     Dosage: 400 MG, VARIED FROM EVERY 6TH WEEK TO EVERY THIRD MONTH
     Route: 042
     Dates: start: 20040331, end: 20130124
  3. METHOTREXATE [Concomitant]
     Dosage: 15 MG, WEEKLY
     Route: 065
  4. FOLIC ACID [Concomitant]
     Dosage: UNK
     Route: 065

REACTIONS (6)
  - Ileus [Unknown]
  - Joint swelling [Unknown]
  - Arthralgia [Unknown]
  - Abscess oral [Unknown]
  - Angioedema [Unknown]
  - Gingivitis [Unknown]
